FAERS Safety Report 5898524-3 (Version None)
Quarter: 2008Q3

REPORT INFORMATION
  Report Type: 
  Country: None (occurrence: None)
  Receive Date: 20080925
  Receipt Date: 20080102
  Transmission Date: 20090109
  Serious: No
  Sender: FDA-Public Use
  Company Number: A0701021A

PATIENT
  Age: 71 Year
  Sex: Male

DRUGS (7)
  1. WELLBUTRIN XL [Suspect]
     Indication: DRUG USE FOR UNKNOWN INDICATION
     Dosage: 150MG PER DAY
     Route: 048
     Dates: start: 20071228
  2. ZOCOR [Concomitant]
  3. ZETIA [Concomitant]
  4. FOLIC ACID [Concomitant]
  5. BLOOD PRESSURE MED [Concomitant]
  6. ASPIRIN [Concomitant]
  7. UNKNOWN MEDICATION [Concomitant]

REACTIONS (1)
  - INSOMNIA [None]
